FAERS Safety Report 25622589 (Version 1)
Quarter: 2025Q3

REPORT INFORMATION
  Report Type: Spontaneous
  Country: US (occurrence: None)
  Receive Date: 20250729
  Receipt Date: 20250729
  Transmission Date: 20251020
  Serious: Yes (Other)
  Sender: FDA-CTU
  Company Number: None

PATIENT
  Age: 73 Year
  Sex: Female
  Weight: 54 kg

DRUGS (10)
  1. ALENDRONATE SODIUM [Suspect]
     Active Substance: ALENDRONATE SODIUM
  2. CALCIUM [Concomitant]
     Active Substance: CALCIUM
  3. LUTEIN [Concomitant]
     Active Substance: LUTEIN
  4. DIETARY SUPPLEMENT [Concomitant]
     Active Substance: DIETARY SUPPLEMENT
  5. VITAMIN C [Concomitant]
     Active Substance: ASCORBIC ACID
  6. NAC. [Concomitant]
  7. ALA [Concomitant]
  8. Spirullina [Concomitant]
  9. K2/D3 [Concomitant]
  10. VITAMIN B COMPLEX [Concomitant]
     Active Substance: CYANOCOBALAMIN\DEXPANTHENOL\NIACINAMIDE\PYRIDOXINE HYDROCHLORIDE\RIBOFLAVIN 5^-PHOSPHATE SODIUM\THIA

REACTIONS (7)
  - Incorrect dose administered [None]
  - Dyspepsia [None]
  - Osteonecrosis of jaw [None]
  - Dental caries [None]
  - Gingival disorder [None]
  - Dyspepsia [None]
  - Loose tooth [None]

NARRATIVE: CASE EVENT DATE: 20250720
